FAERS Safety Report 14512069 (Version 4)
Quarter: 2018Q3

REPORT INFORMATION
  Report Type: Report from Study
  Country: MX (occurrence: MX)
  Receive Date: 20180209
  Receipt Date: 20180705
  Transmission Date: 20181010
  Serious: Yes (Hospitalization, Other)
  Sender: FDA-Public Use
  Company Number: PHHY2018MX021515

PATIENT
  Age: 78 Year
  Sex: Female
  Weight: 82 kg

DRUGS (13)
  1. EXFORGE [Suspect]
     Active Substance: AMLODIPINE BESYLATE\VALSARTAN
     Dosage: 3 DF, (AMLODIPINE 5 MG, VALSARTAN 320 MG), QD
     Route: 048
  2. TIMAZOL [Concomitant]
     Active Substance: METHIMAZOLE
     Dosage: 2 DF, QD (SINCE 5 YEARS)
     Route: 048
  3. EXFORGE [Suspect]
     Active Substance: AMLODIPINE BESYLATE\VALSARTAN
     Dosage: 2 DF (AMLODIPINE 5 MG, VALSARTAN 320 MG), QD
     Route: 048
  4. OMEPRAZOLE. [Concomitant]
     Active Substance: OMEPRAZOLE
     Indication: GASTROINTESTINAL DISORDER
     Dosage: 1 DF, QD (APPROXIMATELY 7 YEARS AGO)
     Route: 048
  5. EXFORGE [Suspect]
     Active Substance: AMLODIPINE BESYLATE\VALSARTAN
     Indication: HYPERTENSION
     Dosage: 1 DF (AMLODIPINE 5 MG, VALSARTAN 320 MG), QD
     Route: 048
  6. EXFORGE [Suspect]
     Active Substance: AMLODIPINE BESYLATE\VALSARTAN
     Dosage: 2 DF (AMLODIPINE 5 MG, VALSARTAN 320 MG), QD (SINCE 3 MONTHS)
     Route: 048
  7. THIAMAZOLE [Concomitant]
     Active Substance: METHIMAZOLE
     Indication: THYROID DISORDER
     Dosage: 2 DF, QD STARTED 5 YEARS AGO
     Route: 048
  8. PROPRANOLOL [Concomitant]
     Active Substance: PROPRANOLOL HYDROCHLORIDE
     Dosage: 3 DF, QD (SINCE 5 YEARS)
     Route: 048
  9. PROPRANOLOL [Concomitant]
     Active Substance: PROPRANOLOL HYDROCHLORIDE
     Indication: CARDIAC DISORDER
     Dosage: 2 DF, QD STARTED 5 YEARS AGO
     Route: 048
  10. EXFORGE [Suspect]
     Active Substance: AMLODIPINE BESYLATE\VALSARTAN
     Dosage: 1 DF (AMLODIPINE 5 MG, VALSARTAN 320 MG), QD
     Route: 048
  11. EXFORGE [Suspect]
     Active Substance: AMLODIPINE BESYLATE\VALSARTAN
     Dosage: 2 DF, (AMLODIPINE 5 MG, VALSARTAN 320 MG), QD
     Route: 048
  12. OMEPRAZOLE. [Concomitant]
     Active Substance: OMEPRAZOLE
     Indication: ARRHYTHMIA
     Dosage: 2 DF, QD (SINCE 7 YEARS)
     Route: 048
  13. TIMAZOL [Concomitant]
     Active Substance: METHIMAZOLE
     Indication: THYROID DISORDER
     Dosage: 1 DF, QD (APPROXIMATELY 4 YEARS AGO)
     Route: 065

REACTIONS (12)
  - Arrhythmia [Not Recovered/Not Resolved]
  - Prescribed overdose [Not Recovered/Not Resolved]
  - Hypertensive crisis [Recovered/Resolved]
  - Mobility decreased [Unknown]
  - Fatigue [Not Recovered/Not Resolved]
  - Blood pressure decreased [Unknown]
  - Drug prescribing error [Not Recovered/Not Resolved]
  - Left ventricular dilatation [Not Recovered/Not Resolved]
  - Blood pressure increased [Unknown]
  - Inappropriate schedule of drug administration [Not Recovered/Not Resolved]
  - Blood pressure abnormal [Recovered/Resolved]
  - Feeling abnormal [Unknown]

NARRATIVE: CASE EVENT DATE: 20180621
